FAERS Safety Report 7781985-2 (Version None)
Quarter: 2011Q3

REPORT INFORMATION
  Report Type: 
  Country: None (occurrence: None)
  Receive Date: 20110927
  Receipt Date: 20110920
  Transmission Date: 20111222
  Serious: Yes (Other)
  Sender: FDA-Public Use
  Company Number: PHEH2009US13749

PATIENT
  Sex: Male
  Weight: 98.866 kg

DRUGS (2)
  1. ZOMETA [Suspect]
     Dates: start: 20010301
  2. AREDIA [Suspect]
     Dates: start: 20000731

REACTIONS (17)
  - METASTASES TO BONE [None]
  - PERIODONTITIS [None]
  - ANHEDONIA [None]
  - BONE LESION [None]
  - TOOTH ABSCESS [None]
  - SPINAL OSTEOARTHRITIS [None]
  - METASTASES TO SPINE [None]
  - GENERAL PHYSICAL HEALTH DETERIORATION [None]
  - TOOTH LOSS [None]
  - VASCULAR CALCIFICATION [None]
  - EXPOSED BONE IN JAW [None]
  - PAIN [None]
  - BONE DISORDER [None]
  - PANCYTOPENIA [None]
  - OSTEONECROSIS OF JAW [None]
  - ANXIETY [None]
  - PATHOLOGICAL FRACTURE [None]
